FAERS Safety Report 6672792-2 (Version None)
Quarter: 2010Q2

REPORT INFORMATION
  Report Type: 
  Country: None (occurrence: None)
  Receive Date: 20100406
  Receipt Date: 20100322
  Transmission Date: 20101027
  Serious: Yes (Other)
  Sender: FDA-Public Use
  Company Number: AUR-APL-2010-00863

PATIENT
  Age: 46 Year
  Sex: Female

DRUGS (5)
  1. ONDANSETRON [Suspect]
     Indication: NAUSEA
     Dosage: INTRAVENOUS
     Route: 042
  2. VALSARTAN/HYDROCHLOROTHIAZIDE [Concomitant]
  3. PANTOPRAZOLE [Concomitant]
  4. MIDAZOLAM HCL [Concomitant]
  5. FENTANYL [Concomitant]

REACTIONS (13)
  - ARRHYTHMIA [None]
  - ATRIAL FIBRILLATION [None]
  - ATRIOVENTRICULAR BLOCK SECOND DEGREE [None]
  - BODY TEMPERATURE INCREASED [None]
  - DECREASED APPETITE [None]
  - ELECTROCARDIOGRAM QT PROLONGED [None]
  - GASTRITIS [None]
  - HEART RATE DECREASED [None]
  - HIATUS HERNIA [None]
  - NAUSEA [None]
  - ODYNOPHAGIA [None]
  - SINUS TACHYCARDIA [None]
  - VOMITING [None]
